FAERS Safety Report 24818611 (Version 2)
Quarter: 2025Q3

REPORT INFORMATION
  Report Type: Report from Study
  Country: US (occurrence: US)
  Receive Date: 20250108
  Receipt Date: 20250801
  Transmission Date: 20251020
  Serious: Yes (Hospitalization, Other)
  Sender: SUNOVION
  Company Number: US-SUMITOMO PHARMA SWITZERLAND GMBH-2024SPA006609

PATIENT

DRUGS (1)
  1. ORGOVYX [Suspect]
     Active Substance: RELUGOLIX
     Indication: Prostate cancer
     Dosage: 120 MG, QD
     Route: 048
     Dates: start: 20241105

REACTIONS (6)
  - Pneumonia [Unknown]
  - Hypersomnia [Unknown]
  - Emotional disorder [Unknown]
  - Crying [Unknown]
  - Fatigue [Unknown]
  - Incorrect dose administered [Recovered/Resolved]
